FAERS Safety Report 23544729 (Version 1)
Quarter: 2024Q1

REPORT INFORMATION
  Report Type: Spontaneous
  Country: CN (occurrence: CN)
  Receive Date: 20240220
  Receipt Date: 20240220
  Transmission Date: 20240409
  Serious: Yes (Hospitalization)
  Sender: FDA-Public Use
  Company Number: CN-Merck Healthcare KGaA-2024007345

PATIENT
  Age: 73 Year
  Sex: Female
  Weight: 70 kg

DRUGS (1)
  1. ERBITUX [Suspect]
     Active Substance: CETUXIMAB
     Indication: Rectal cancer metastatic
     Dosage: 0.7 G, UNKNOWN (0.1G WITH 100ML AND 0.6G WITH 250ML OF 0.9 PERCENT SODIUM CHLORIDE)
     Route: 041
     Dates: start: 20240130

REACTIONS (1)
  - Atrioventricular block [Recovering/Resolving]

NARRATIVE: CASE EVENT DATE: 20240130
